FAERS Safety Report 6233438-0 (Version None)
Quarter: 2009Q2

REPORT INFORMATION
  Report Type: 
  Country: None (occurrence: None)
  Receive Date: 20090616
  Receipt Date: 20090616
  Transmission Date: 20091009
  Serious: Yes (Death, Life-Threatening)
  Sender: FDA-Public Use
  Company Number: None

PATIENT
  Age: 65 Year
  Sex: Male
  Weight: 77 kg

DRUGS (18)
  1. CILOSTAZOL [Suspect]
     Dosage: 50 MG BID PO
     Route: 048
     Dates: start: 20090104, end: 20090113
  2. PLAVIX [Suspect]
     Dosage: 75 MG QD PO
     Route: 048
     Dates: start: 20081212, end: 20090113
  3. PLAVIX [Concomitant]
  4. ASPIRIN [Concomitant]
  5. SIMVASTATIN [Concomitant]
  6. ATENOLOL [Concomitant]
  7. ENABLEX [Concomitant]
  8. COLCHICINE [Concomitant]
  9. LASIX [Concomitant]
  10. NEXIUM [Concomitant]
  11. COMBIVENT [Concomitant]
  12. MYLANTA [Concomitant]
  13. K-DUR [Concomitant]
  14. TRENTAL [Concomitant]
  15. SIMETHICONE [Concomitant]
  16. ZOLOFT [Concomitant]
  17. OMEPRAZOLE [Concomitant]
  18. COREG [Concomitant]

REACTIONS (3)
  - AMPUTATION [None]
  - HAEMORRHAGE [None]
  - WOUND [None]
